FAERS Safety Report 6114275-4 (Version None)
Quarter: 2009Q1

REPORT INFORMATION
  Report Type: 
  Country: None (occurrence: None)
  Receive Date: 20090312
  Receipt Date: 20081017
  Transmission Date: 20090719
  Serious: No
  Sender: FDA-Public Use
  Company Number: US-ABBOTT-08P-163-0482900-00

PATIENT
  Sex: Male

DRUGS (2)
  1. DEPAKOTE [Suspect]
     Indication: EPILEPSY
  2. METHADONE HCL [Concomitant]
     Indication: DRUG DEPENDENCE
     Dates: start: 20080901

REACTIONS (2)
  - CONVULSION [None]
  - PSYCHOTIC DISORDER [None]
